FAERS Safety Report 9180564 (Version 1)
Quarter: 2013Q1

REPORT INFORMATION
  Report Type: Spontaneous
  Country: US (occurrence: None)
  Receive Date: 20130320
  Receipt Date: 20130320
  Transmission Date: 20140127
  Serious: Yes (Other)
  Sender: FDA-Public Use
  Company Number: 13-01064

PATIENT
  Age: 75 Year
  Sex: Female
  Weight: 53.52 kg

DRUGS (2)
  1. IPRATROPIUM BROMIDE/ALBUTEROL SULFATE [Suspect]
     Indication: ASTHMA
     Dates: start: 200603, end: 201303
  2. IPRATROPIUM BROMIDE/ALBUTEROL SULFATE [Suspect]
     Indication: EMPHYSEMA
     Dates: start: 200603, end: 201303

REACTIONS (4)
  - Dyspnoea [None]
  - Erythema [None]
  - Headache [None]
  - Dysphonia [None]
